FAERS Safety Report 13047988 (Version 2)
Quarter: 2017Q1

REPORT INFORMATION
  Report Type: Spontaneous
  Country: US (occurrence: US)
  Receive Date: 20161220
  Receipt Date: 20170124
  Transmission Date: 20170428
  Serious: Yes (Death)
  Sender: FDA-Public Use
  Company Number: US-ACTELION-A-NJ2016-147112

PATIENT
  Age: 57 Year
  Sex: Male

DRUGS (1)
  1. TRACLEER [Suspect]
     Active Substance: BOSENTAN
     Indication: PULMONARY HYPERTENSION
     Dosage: 125 MG, BID
     Route: 048
     Dates: start: 20160721, end: 20161211

REACTIONS (3)
  - Pulmonary arterial hypertension [Fatal]
  - Pulmonary sarcoidosis [Fatal]
  - Disease progression [Fatal]
